FAERS Safety Report 9840074 (Version 1)
Quarter: 2014Q1

REPORT INFORMATION
  Report Type: Spontaneous
  Country: CA (occurrence: CA)
  Receive Date: 20140124
  Receipt Date: 20140124
  Transmission Date: 20141002
  Serious: Yes (Other)
  Sender: FDA-Public Use
  Company Number: CA-SHIRE-ALL1-2014-00301

PATIENT
  Age: 13 Year
  Sex: Male

DRUGS (2)
  1. INTUNIV XR [Suspect]
     Indication: ATTENTION DEFICIT/HYPERACTIVITY DISORDER
     Dosage: 1 MG, UNKNOWN
     Route: 048
     Dates: start: 201310
  2. CONCERTA [Concomitant]
     Indication: ATTENTION DEFICIT/HYPERACTIVITY DISORDER
     Dosage: 2 DF(2 RED TABS), UNKNOWN
     Route: 065

REACTIONS (11)
  - Negative thoughts [Not Recovered/Not Resolved]
  - Mental disorder [Not Recovered/Not Resolved]
  - Hallucination, auditory [Not Recovered/Not Resolved]
  - Heart rate increased [Not Recovered/Not Resolved]
  - Personality change [Not Recovered/Not Resolved]
  - Sudden onset of sleep [Not Recovered/Not Resolved]
  - Mood altered [Not Recovered/Not Resolved]
  - Somnolence [Not Recovered/Not Resolved]
  - Nausea [Not Recovered/Not Resolved]
  - Vomiting [Not Recovered/Not Resolved]
  - Off label use [Unknown]
